FAERS Safety Report 8573241-X (Version None)
Quarter: 2012Q3

REPORT INFORMATION
  Report Type: 
  Country: None (occurrence: None)
  Receive Date: 20120806
  Receipt Date: 20120731
  Transmission Date: 20120928
  Serious: Yes (Other)
  Sender: FDA-Public Use
  Company Number: GB-ALLERGAN-1210517US

PATIENT
  Age: 8 Year
  Sex: Male
  Weight: 25.5 kg

DRUGS (2)
  1. BOTULINUM TOXIN TYPE A [Suspect]
     Indication: MUSCLE SPASTICITY
     Dosage: UNK
     Route: 030
     Dates: start: 20120706, end: 20120706
  2. ETHYL CHLORIDE [Concomitant]
     Indication: LOCAL ANAESTHESIA
     Dosage: UNK
     Route: 061
     Dates: start: 20120706, end: 20120706

REACTIONS (3)
  - URTICARIA [None]
  - ERYTHEMA [None]
  - LOCAL REACTION [None]
